FAERS Safety Report 9686413 (Version 2)
Quarter: 2013Q4

REPORT INFORMATION
  Report Type: Spontaneous
  Country: CA (occurrence: CA)
  Receive Date: 20131113
  Receipt Date: 20131126
  Transmission Date: 20140711
  Serious: Yes (Other)
  Sender: FDA-Public Use
  Company Number: CA-ROCHE-1302765

PATIENT
  Age: 68 Year
  Sex: Female

DRUGS (5)
  1. XOLAIR [Suspect]
     Indication: ASTHMA
     Route: 058
     Dates: start: 201305
  2. XOLAIR [Suspect]
     Route: 058
     Dates: start: 20130620, end: 201310
  3. SYMBICORT [Concomitant]
  4. VENTOLIN [Concomitant]
  5. SPIRIVA [Concomitant]

REACTIONS (4)
  - Haematoma [Unknown]
  - Polyneuropathy [Not Recovered/Not Resolved]
  - Pain in extremity [Unknown]
  - Fatigue [Unknown]
